FAERS Safety Report 6747367-7 (Version None)
Quarter: 2010Q2

REPORT INFORMATION
  Report Type: 
  Country: None (occurrence: None)
  Receive Date: 20100528
  Receipt Date: 20100526
  Transmission Date: 20101027
  Serious: Yes (Life-Threatening, Hospitalization)
  Sender: FDA-Public Use
  Company Number: B0646144A

PATIENT
  Sex: Female

DRUGS (5)
  1. DILATREND [Suspect]
     Dosage: 18.75MG PER DAY
     Route: 048
     Dates: start: 20090301, end: 20100309
  2. PROPAFENONE HCL [Suspect]
     Dosage: 325MG PER DAY
     Route: 048
     Dates: start: 20090301, end: 20100309
  3. MODURETIC 5-50 [Concomitant]
     Indication: HYPERTENSION
  4. PANTOPRAZOLE SODIUM [Concomitant]
     Indication: GASTRITIS PROPHYLAXIS
  5. TICLOPIDINE HYDROCHLORIDE [Concomitant]
     Indication: ATRIAL FIBRILLATION

REACTIONS (3)
  - BRADYCARDIA [None]
  - CARDIAC ARREST [None]
  - HYPOTENSION [None]
